FAERS Safety Report 4350788-3 (Version None)
Quarter: 2004Q2

REPORT INFORMATION
  Report Type: 
  Country: None (occurrence: None)
  Receive Date: 20040430
  Receipt Date: 20040407
  Transmission Date: 20050107
  Serious: Yes (Hospitalization)
  Sender: FDA-Public Use
  Company Number: ES-ROCHE-363856

PATIENT
  Age: 44 Year
  Sex: Male
  Weight: 75 kg

DRUGS (9)
  1. DACLIZUMAB [Suspect]
     Route: 042
     Dates: end: 20040312
  2. DACLIZUMAB [Suspect]
     Route: 042
     Dates: start: 20040116, end: 20040116
  3. MYCOPHENOLATE MOFETIL [Suspect]
     Route: 048
     Dates: start: 20040206
  4. CYCLOSPORINE [Suspect]
     Route: 048
     Dates: start: 20040206
  5. PREDNISONE [Suspect]
     Route: 048
     Dates: start: 20040206
  6. SEGURIL [Concomitant]
     Route: 048
     Dates: start: 20040206
  7. OMEPRAZOLE [Concomitant]
     Route: 048
     Dates: start: 20040207
  8. COTRIM [Concomitant]
     Route: 048
     Dates: start: 20040208
  9. ORFIDAL [Concomitant]
     Route: 048
     Dates: start: 20040326

REACTIONS (4)
  - BLOOD GLUCOSE INCREASED [None]
  - KIDNEY TRANSPLANT REJECTION [None]
  - LEUKOPENIA [None]
  - MUCOCUTANEOUS CANDIDIASIS [None]
